FAERS Safety Report 23055864 (Version 5)
Quarter: 2024Q2

REPORT INFORMATION
  Report Type: Spontaneous
  Country: US (occurrence: US)
  Receive Date: 20231011
  Receipt Date: 20240625
  Transmission Date: 20240716
  Serious: No
  Sender: FDA-Public Use
  Company Number: US-BRISTOL-MYERS SQUIBB COMPANY-2023-144483

PATIENT
  Age: 81 Year
  Sex: Male
  Weight: 112.04 kg

DRUGS (3)
  1. REVLIMID [Suspect]
     Active Substance: LENALIDOMIDE
     Indication: Plasma cell myeloma
     Dosage: FREQUENCY: 3 WKS ON, 1 WK OFF
     Route: 048
  2. REVLIMID [Suspect]
     Active Substance: LENALIDOMIDE
     Route: 048
  3. REVLIMID [Suspect]
     Active Substance: LENALIDOMIDE
     Route: 048
     Dates: start: 20230701

REACTIONS (6)
  - Fatigue [Not Recovered/Not Resolved]
  - Abdominal discomfort [Recovering/Resolving]
  - Tremor [Unknown]
  - Constipation [Unknown]
  - Dizziness [Unknown]
  - Dyspepsia [Unknown]
